FAERS Safety Report 9418323 (Version 1)
Quarter: 2013Q3

REPORT INFORMATION
  Report Type: Spontaneous
  Country: US (occurrence: US)
  Receive Date: 20130725
  Receipt Date: 20130725
  Transmission Date: 20140515
  Serious: Yes (Hospitalization)
  Sender: FDA-Public Use
  Company Number: US-ROCHE-1252420

PATIENT
  Sex: Male

DRUGS (1)
  1. PULMOZYME [Suspect]
     Indication: PNEUMONIA
     Dosage: 1 MG/ML
     Route: 065
     Dates: start: 201209, end: 201209

REACTIONS (1)
  - Renal failure [Recovered/Resolved]
